FAERS Safety Report 7623326-7 (Version None)
Quarter: 2011Q3

REPORT INFORMATION
  Report Type: 
  Country: None (occurrence: None)
  Receive Date: 20110720
  Receipt Date: 20110708
  Transmission Date: 20111222
  Serious: Yes (Life-Threatening)
  Sender: FDA-Public Use
  Company Number: JP-JNJFOC-20110704880

PATIENT
  Sex: Male

DRUGS (4)
  1. LEVOFLOXACIN [Suspect]
     Indication: HORDEOLUM
     Route: 048
     Dates: start: 20110630, end: 20110630
  2. UNKNOWN MEDICATION [Suspect]
     Indication: PRODUCT USED FOR UNKNOWN INDICATION
     Route: 042
  3. LEVOFLOXACIN [Concomitant]
     Indication: HORDEOLUM
     Dosage: 6-7 TIMES A DAY; 1-2 DROPS/TIMES
     Route: 065
     Dates: start: 20110630, end: 20110630
  4. POLARAMINE [Suspect]
     Indication: PRODUCT USED FOR UNKNOWN INDICATION
     Route: 065

REACTIONS (4)
  - PHOTOSENSITIVITY REACTION [None]
  - LOSS OF CONSCIOUSNESS [None]
  - DYSPNOEA [None]
  - CONVULSION [None]
